FAERS Safety Report 12433617 (Version 1)
Quarter: 2016Q2

REPORT INFORMATION
  Report Type: Spontaneous
  Country: IT (occurrence: IT)
  Receive Date: 20160603
  Receipt Date: 20160603
  Transmission Date: 20160815
  Serious: Yes (Other)
  Sender: FDA-Public Use
  Company Number: IT-TEVA-663960ACC

PATIENT

DRUGS (5)
  1. APIXABAN [Suspect]
     Active Substance: APIXABAN
  2. TICAGRELOR [Suspect]
     Active Substance: TICAGRELOR
  3. CLOPIDOGREL [Suspect]
     Active Substance: CLOPIDOGREL BISULFATE
  4. PRASUGREL [Suspect]
     Active Substance: PRASUGREL
  5. VORAPAXAR [Suspect]
     Active Substance: VORAPAXAR

REACTIONS (5)
  - Respiratory disorder [Unknown]
  - Cardiovascular disorder [Unknown]
  - Gastrointestinal disorder [Unknown]
  - Adverse event [Unknown]
  - Infection [Unknown]
